FAERS Safety Report 7088659-4 (Version None)
Quarter: 2010Q4

REPORT INFORMATION
  Report Type: 
  Country: None (occurrence: None)
  Receive Date: 20101029
  Receipt Date: 20101025
  Transmission Date: 20110411
  Serious: Yes (Other)
  Sender: FDA-Public Use
  Company Number: DSU-2010-05760

PATIENT
  Sex: Female

DRUGS (1)
  1. EVOXAC [Suspect]
     Indication: SJOGREN'S SYNDROME
     Dosage: PER ORAL
     Route: 048

REACTIONS (3)
  - CRYING [None]
  - ECONOMIC PROBLEM [None]
  - TERMINAL STATE [None]
